FAERS Safety Report 9542633 (Version 1)
Quarter: 2013Q3

REPORT INFORMATION
  Report Type: Spontaneous
  Country: US (occurrence: US)
  Receive Date: 20130923
  Receipt Date: 20130923
  Transmission Date: 20140515
  Serious: No
  Sender: FDA-Public Use
  Company Number: US-PFIZER INC-2013270117

PATIENT
  Age: 87 Year
  Sex: Female

DRUGS (2)
  1. ADVIL [Suspect]
     Indication: BACK DISORDER
     Dosage: UNK
     Route: 048
     Dates: start: 20130916
  2. ADVIL [Interacting]
     Indication: PAIN

REACTIONS (3)
  - Drug interaction [Not Recovered/Not Resolved]
  - Abdominal discomfort [Not Recovered/Not Resolved]
  - Nausea [Not Recovered/Not Resolved]
